FAERS Safety Report 11211389 (Version 1)
Quarter: 2015Q2

REPORT INFORMATION
  Report Type: Spontaneous
  Country: US (occurrence: None)
  Receive Date: 20150619
  Receipt Date: 20150619
  Transmission Date: 20150821
  Serious: No
  Sender: FDA-Public Use
  Company Number: None

PATIENT
  Age: 64 Year
  Sex: Male
  Weight: 105.69 kg

DRUGS (1)
  1. AMLODIPINE BESYLATE. [Suspect]
     Active Substance: AMLODIPINE BESYLATE
     Indication: HYPERTENSION
     Dosage: 1 PILL DAILY  ONCE DAILY TAKEN BY MOUTH
     Route: 048

REACTIONS (3)
  - Product quality issue [None]
  - Product solubility abnormal [None]
  - Product substitution issue [None]

NARRATIVE: CASE EVENT DATE: 20150618
